FAERS Safety Report 24709280 (Version 4)
Quarter: 2025Q2

REPORT INFORMATION
  Report Type: Spontaneous
  Country: JP (occurrence: JP)
  Receive Date: 20241208
  Receipt Date: 20250609
  Transmission Date: 20250716
  Serious: Yes (Other)
  Sender: TAKEDA
  Company Number: JP-TAKEDA-2024TJP017365

PATIENT
  Age: 71 Year
  Sex: Male

DRUGS (1)
  1. VONVENDI [Suspect]
     Active Substance: VON WILLEBRAND FACTOR (RECOMBINANT)
     Indication: Haemorrhagic diathesis
     Dosage: 2600 INTERNATIONAL UNIT, 1/WEEK
     Dates: start: 20230901

REACTIONS (1)
  - Von Willebrand^s factor inhibition [Unknown]

NARRATIVE: CASE EVENT DATE: 20241201
